FAERS Safety Report 8582949-1 (Version None)
Quarter: 2012Q3

REPORT INFORMATION
  Report Type: 
  Country: None (occurrence: None)
  Receive Date: 20120809
  Receipt Date: 20120803
  Transmission Date: 20120928
  Serious: Yes (Hospitalization, Other)
  Sender: FDA-Public Use
  Company Number: PE-PFIZER INC-2012184570

PATIENT
  Age: 80 Year
  Sex: Female

DRUGS (1)
  1. LATANOPROST [Suspect]
     Dosage: UNK
     Route: 047
     Dates: start: 20120101

REACTIONS (1)
  - MENINGITIS [None]
